FAERS Safety Report 4315986-3 (Version None)
Quarter: 2004Q1

REPORT INFORMATION
  Report Type: 
  Country: None (occurrence: None)
  Receive Date: 20040310
  Receipt Date: 20040227
  Transmission Date: 20041129
  Serious: Yes (Hospitalization, Disabling)
  Sender: FDA-Public Use
  Company Number: 02P-083-0189837-00

PATIENT
  Age: 29 Year
  Sex: Female
  Weight: 130 kg

DRUGS (1)
  1. MERIDIA [Suspect]
     Indication: OBESITY
     Dosage: 10 MG, 1 IN 1 D, PER ORAL
     Route: 048
     Dates: start: 20000901, end: 20010731

REACTIONS (5)
  - ASTHENIA [None]
  - GLOMERULONEPHRITIS MEMBRANOPROLIFERATIVE [None]
  - HYPERTENSION [None]
  - NEPHRITIS INTERSTITIAL [None]
  - RENAL FAILURE CHRONIC [None]
